FAERS Safety Report 8584784-7 (Version None)
Quarter: 2012Q3

REPORT INFORMATION
  Report Type: 
  Country: None (occurrence: None)
  Receive Date: 20120810
  Receipt Date: 20120807
  Transmission Date: 20120928
  Serious: Yes (Hospitalization)
  Sender: FDA-Public Use
  Company Number: AT-VERTEX PHARMACEUTICALS INC.-000000000000001358

PATIENT
  Age: 50 Year
  Sex: Female

DRUGS (6)
  1. OTHER DRUGS (UNSPECIFIED) [Concomitant]
     Dosage: DOSAGE FORM: UNSPECIFIED
     Route: 065
     Dates: start: 20120522, end: 20120529
  2. CITALOPRAM HYDROBROMIDE [Concomitant]
     Dosage: DOSAGE FORM: UNSPECIFIED
     Route: 065
  3. OTHER DRUGS (UNSPECIFIED) [Concomitant]
     Route: 065
     Dates: start: 20120522, end: 20120529
  4. INCIVO [Suspect]
     Indication: HEPATITIS C
     Dosage: DOSAGE FORM: TABLET
     Route: 065
     Dates: start: 20120522, end: 20120529
  5. OTHER DRUGS (UNSPECIFIED) [Concomitant]
     Indication: HEPATITIS C
     Dosage: DOSAGE FORM: UNSPECIFIED
     Route: 065
     Dates: start: 20120522, end: 20120529
  6. LEGALON [Concomitant]
     Dosage: DOSAGE FORM: UNSPECIFIED
     Route: 065

REACTIONS (2)
  - RASH GENERALISED [None]
  - ALOPECIA [None]
